FAERS Safety Report 6646436-X (Version None)
Quarter: 2010Q1

REPORT INFORMATION
  Report Type: 
  Country: None (occurrence: None)
  Receive Date: 20100322
  Receipt Date: 20100322
  Transmission Date: 20100710
  Serious: Yes (Other)
  Sender: FDA-Public Use
  Company Number: None

PATIENT
  Age: 82 Year
  Sex: Female
  Weight: 57.1532 kg

DRUGS (2)
  1. LANSOPRAZOLE [Suspect]
     Indication: DYSPEPSIA
     Dosage: 30MG ONCE A DAY
     Dates: start: 20100302
  2. LANSOPRAZOLE [Suspect]
     Indication: DYSPEPSIA
     Dosage: 30MG ONCE A DAY
     Dates: start: 20100304

REACTIONS (4)
  - ASTHENIA [None]
  - DIZZINESS [None]
  - PRURITUS GENERALISED [None]
  - URTICARIA [None]
